FAERS Safety Report 7129145-2 (Version None)
Quarter: 2010Q4

REPORT INFORMATION
  Report Type: 
  Country: None (occurrence: None)
  Receive Date: 20101130
  Receipt Date: 20101122
  Transmission Date: 20110411
  Serious: Yes (Hospitalization, Other)
  Sender: FDA-Public Use
  Company Number: IT-ROCHE-743640

PATIENT

DRUGS (3)
  1. PEGINTERFERON ALFA-2A [Suspect]
     Route: 065
  2. RIBAVIRIN [Suspect]
     Route: 065
  3. PEGINTERFERON ALFA-2B [Suspect]
     Route: 065

REACTIONS (40)
  - ABDOMINAL PAIN [None]
  - ALANINE AMINOTRANSFERASE INCREASED [None]
  - ALOPECIA [None]
  - AMENORRHOEA [None]
  - ANAEMIA [None]
  - BACK PAIN [None]
  - COLITIS [None]
  - COUGH [None]
  - DECREASED APPETITE [None]
  - DEPRESSION [None]
  - DIARRHOEA [None]
  - DYSPNOEA [None]
  - EPISTAXIS [None]
  - ERECTILE DYSFUNCTION [None]
  - HEADACHE [None]
  - HYPERBILIRUBINAEMIA [None]
  - HYPERTRANSAMINASAEMIA [None]
  - HYPERTRIGLYCERIDAEMIA [None]
  - HYPERURICAEMIA [None]
  - INFLUENZA LIKE ILLNESS [None]
  - INJECTION SITE ERYTHEMA [None]
  - INSOMNIA [None]
  - IRRITABILITY [None]
  - LEUKOPENIA [None]
  - MYALGIA [None]
  - NAUSEA [None]
  - NEUTROPENIA [None]
  - PANIC ATTACK [None]
  - PARAESTHESIA [None]
  - PHARYNGITIS [None]
  - PNEUMONITIS [None]
  - PRURITUS [None]
  - PSORIASIS [None]
  - RASH [None]
  - RENAL COLIC [None]
  - SYNCOPE [None]
  - THROMBOCYTOPENIA [None]
  - URINARY TRACT INFECTION [None]
  - VERTIGO [None]
  - WEIGHT DECREASED [None]
